FAERS Safety Report 4351669-1 (Version None)
Quarter: 2004Q2

REPORT INFORMATION
  Report Type: 
  Country: None (occurrence: None)
  Receive Date: 20040429
  Receipt Date: 20040301
  Transmission Date: 20050107
  Serious: No
  Sender: FDA-Public Use
  Company Number: 2004-114283-NL

PATIENT
  Age: 42 Year
  Sex: Female
  Weight: 86 kg

DRUGS (1)
  1. NUVARING [Suspect]
     Indication: CONTRACEPTION
     Dosage: DF DAILY VAGINAL
     Route: 067
     Dates: start: 20031101, end: 20040101

REACTIONS (5)
  - ABDOMINAL TENDERNESS [None]
  - HYPOAESTHESIA [None]
  - MUSCLE CRAMP [None]
  - OVARIAN CYST [None]
  - PAIN IN EXTREMITY [None]
